FAERS Safety Report 7291142-4 (Version None)
Quarter: 2011Q1

REPORT INFORMATION
  Report Type: 
  Country: None (occurrence: None)
  Receive Date: 20110214
  Receipt Date: 20110208
  Transmission Date: 20110831
  Serious: Yes (Hospitalization)
  Sender: FDA-Public Use
  Company Number: BR-ABBOTT-10P-020-0694398-00

PATIENT
  Sex: Female
  Weight: 50 kg

DRUGS (6)
  1. ARAVA [Concomitant]
     Indication: RHEUMATOID ARTHRITIS
     Route: 048
  2. DEPAKOTE ER [Suspect]
     Indication: EPILEPSY
     Dosage: 2 DOSAGE FORM; TWICE A DAY
     Route: 048
     Dates: start: 20100601
  3. PANTOCAL [Concomitant]
     Indication: GASTRIC DISORDER
  4. ASPIRIN [Concomitant]
     Indication: CARDIOVASCULAR DISORDER
     Route: 048
     Dates: start: 20090401
  5. PANTOCAL [Concomitant]
     Indication: PROPHYLAXIS
     Route: 048
     Dates: start: 20090601
  6. LEFLUNOMIDE [Concomitant]
     Indication: PRODUCT USED FOR UNKNOWN INDICATION

REACTIONS (10)
  - INCREASED BRONCHIAL SECRETION [None]
  - PHARYNGEAL INFLAMMATION [None]
  - MALNUTRITION [None]
  - VIRAL INFECTION [None]
  - DECREASED APPETITE [None]
  - DYSPHAGIA [None]
  - ANAEMIA [None]
  - THROAT IRRITATION [None]
  - ASTHENIA [None]
  - INCREASED UPPER AIRWAY SECRETION [None]
